FAERS Safety Report 15806610 (Version 2)
Quarter: 2019Q1

REPORT INFORMATION
  Report Type: Report from Study
  Country: ZA (occurrence: ZA)
  Receive Date: 20190110
  Receipt Date: 20190215
  Transmission Date: 20190417
  Serious: Yes (Life-Threatening, Hospitalization)
  Sender: FDA-Public Use
  Company Number: ZA-SA-2018SA274323

PATIENT
  Age: 49 Year
  Sex: Female

DRUGS (6)
  1. OPTISULIN (INSULIN GLARGINE) [Suspect]
     Active Substance: INSULIN GLARGINE
     Dosage: 40 IU, QD
     Dates: start: 20180725
  2. ASPAVOR [Concomitant]
     Active Substance: ATORVASTATIN
     Dosage: AS-10 MG,(AFTER SUPPER), QD
     Dates: start: 20180726
  3. OPTISULIN (INSULIN GLARGINE) [Suspect]
     Active Substance: INSULIN GLARGINE
     Dosage: BT-20 U, (BED TIME),HS
     Dates: start: 20180725
  4. OPTISULIN (INSULIN GLARGINE) [Suspect]
     Active Substance: INSULIN GLARGINE
     Indication: TYPE 2 DIABETES MELLITUS
     Dosage: 52 U, HS
     Dates: start: 20180702
  5. INSULIN GLULISINE [Suspect]
     Active Substance: INSULIN GLULISINE
     Dosage: 10 U, BID
     Dates: start: 20181019
  6. METFORMIN [Concomitant]
     Active Substance: METFORMIN HYDROCHLORIDE
     Dosage: AS-1000 MG,(AFTER SUPPER) AB-1000 MG,(AFTER BREAKFAST), BID
     Dates: start: 20180726

REACTIONS (6)
  - Limb injury [Recovering/Resolving]
  - Drug ineffective [Unknown]
  - Neck pain [Not Recovered/Not Resolved]
  - Fall [Unknown]
  - Hyperglycaemia [Not Recovered/Not Resolved]
  - Limb fracture [Unknown]

NARRATIVE: CASE EVENT DATE: 20180702
